FAERS Safety Report 11516509 (Version 1)
Quarter: 2015Q3

REPORT INFORMATION
  Report Type: Spontaneous
  Country: US (occurrence: US)
  Receive Date: 20150917
  Receipt Date: 20150917
  Transmission Date: 20151125
  Serious: No
  Sender: FDA-Public Use
  Company Number: US-PFIZER INC-2015303136

PATIENT
  Age: 51 Year
  Sex: Female
  Weight: 95 kg

DRUGS (1)
  1. ADVIL [Suspect]
     Active Substance: IBUPROFEN
     Indication: HEADACHE
     Dosage: 400 MG, DAILY

REACTIONS (4)
  - Product taste abnormal [Unknown]
  - Poor quality drug administered [Unknown]
  - Dysgeusia [Unknown]
  - Product physical issue [Unknown]

NARRATIVE: CASE EVENT DATE: 201508
